FAERS Safety Report 4560761-8 (Version None)
Quarter: 2005Q1

REPORT INFORMATION
  Report Type: 
  Country: None (occurrence: None)
  Receive Date: 20050121
  Receipt Date: 20050118
  Transmission Date: 20050727
  Serious: Yes (Hospitalization, Disabling)
  Sender: FDA-Public Use
  Company Number: TCI2001A00244

PATIENT
  Age: 73 Year
  Sex: Female

DRUGS (8)
  1. ACTOS [Suspect]
     Indication: DIABETES MELLITUS NON-INSULIN-DEPENDENT
     Dosage: 15 MG (15 MG, 1 IN 1 D) PER ORAL
     Route: 048
     Dates: start: 20000602, end: 20000920
  2. ACTOS [Suspect]
     Indication: DIABETES MELLITUS NON-INSULIN-DEPENDENT
     Dosage: 15 MG (15 MG, 1 IN 1 D) PER ORAL
     Route: 048
     Dates: start: 20001005, end: 20010110
  3. CALSLOT TABLETS 20(MANIDIPINE HYDROCHLORIDE) [Concomitant]
  4. GLIBENCLAMIDE [Concomitant]
  5. ETHYL ICOSAPENTATE [Concomitant]
  6. NICORANDIL [Concomitant]
  7. LOSARTAN POTASSIUM [Concomitant]
  8. IFENPRODIL TARTRATE [Concomitant]

REACTIONS (4)
  - ANAEMIA [None]
  - CERVICAL MYELOPATHY [None]
  - MYELODYSPLASTIC SYNDROME [None]
  - SPINAL CORD COMPRESSION [None]
